FAERS Safety Report 20612525 (Version 2)
Quarter: 2022Q2

REPORT INFORMATION
  Report Type: Spontaneous
  Country: FR (occurrence: FR)
  Receive Date: 20220318
  Receipt Date: 20220412
  Transmission Date: 20220720
  Serious: Yes (Hospitalization, Other)
  Sender: FDA-Public Use
  Company Number: None

PATIENT
  Age: 20 Year
  Sex: Female

DRUGS (16)
  1. STELARA [Suspect]
     Active Substance: USTEKINUMAB
     Indication: Colitis
     Dosage: 1 INJ/MOIS?CURRENTLY PLANNED AROUND 03 OF EACH MONTH
     Route: 042
     Dates: start: 20210603, end: 20220130
  2. MORPHINE SULFATE [Concomitant]
     Active Substance: MORPHINE SULFATE
     Indication: Pain
     Dosage: 6 TABLETS
  3. ACUPAN [Concomitant]
     Active Substance: NEFOPAM HYDROCHLORIDE
     Indication: Product used for unknown indication
     Dosage: 1 TO 2 AMPULES OF 20MG PER OS ON A SUGAR, MAXIMUM OF 6 AMPULES PER DAY PER OS ON A SUGAR, MAXIMUM O
  4. VITAMIN B12 [Concomitant]
     Active Substance: CYANOCOBALAMIN
     Indication: Product used for unknown indication
  5. PRIMPERAN [Concomitant]
     Active Substance: METOCLOPRAMIDE HYDROCHLORIDE
     Indication: Nausea
     Dosage: 1 CAP IN CASE OF NAUSEA OR VOMITING, MAXIMUM 3 TIMES PER DAY
  6. PRIMPERAN [Concomitant]
     Active Substance: METOCLOPRAMIDE HYDROCHLORIDE
     Indication: Vomiting
  7. POLYETHYLENE GLYCOLS [Concomitant]
     Active Substance: POLYETHYLENE GLYCOLS
     Indication: Constipation
     Dosage: IF CONSTIPATED, UP TO 2 SACHETS MORNING NOON AND EVENING
  8. FOLIC ACID [Concomitant]
     Active Substance: FOLIC ACID
     Indication: Product used for unknown indication
  9. HYDREA [Concomitant]
     Active Substance: HYDROXYUREA
     Indication: Product used for unknown indication
     Dosage: 4 CAPSULES PER DAY OR 2000MG EVERY DAY EXEPT ON SUNDAY 2500MG (5 CAPSULES) OR?31,7MG/KG/DAY
  10. URSODIOL [Concomitant]
     Active Substance: URSODIOL
     Indication: Product used for unknown indication
     Dosage: 2 TABLETS IN THE MORNING, 1 TABLETS IN THE EVENING
  11. CHOLECALCIFEROL [Concomitant]
     Active Substance: CHOLECALCIFEROL
     Indication: Product used for unknown indication
  12. DOLIPRANE [Concomitant]
     Active Substance: ACETAMINOPHEN
  13. PHLOROGLUCINOL\1,3,5-TRIMETHOXYBENZENE [Concomitant]
     Active Substance: PHLOROGLUCINOL\1,3,5-TRIMETHOXYBENZENE
     Indication: Product used for unknown indication
     Dosage: 1 TO 2 TABLETS MAXIMUM 3 TIMES PER DAY QUANTUM SATIS FOR 10 DAYS PER MONTH
  14. RIVOTRIL [Concomitant]
     Active Substance: CLONAZEPAM
  15. FOSPHENYTOIN SODIUM [Concomitant]
     Active Substance: FOSPHENYTOIN SODIUM
  16. NOREPINEPHRINE [Concomitant]
     Active Substance: NOREPINEPHRINE

REACTIONS (8)
  - Posterior reversible encephalopathy syndrome [Not Recovered/Not Resolved]
  - Clonic convulsion [Unknown]
  - Hospitalisation [Unknown]
  - Chest pain [Unknown]
  - Visual acuity reduced [Unknown]
  - Suspiciousness [Unknown]
  - Off label use [Unknown]
  - Inappropriate schedule of product administration [Unknown]

NARRATIVE: CASE EVENT DATE: 20220112
